FAERS Safety Report 5689817-3 (Version None)
Quarter: 2008Q1

REPORT INFORMATION
  Report Type: 
  Country: None (occurrence: None)
  Receive Date: 20080328
  Receipt Date: 20080307
  Transmission Date: 20080703
  Serious: Yes (Other)
  Sender: FDA-Public Use
  Company Number: URSO-2008-033

PATIENT
  Sex: Male

DRUGS (1)
  1. URSO 250 [Suspect]
     Dates: start: 20071201

REACTIONS (1)
  - FRACTURE [None]
